FAERS Safety Report 24823389 (Version 1)
Quarter: 2025Q1

REPORT INFORMATION
  Report Type: Spontaneous
  Country: US (occurrence: US)
  Receive Date: 20250109
  Receipt Date: 20250109
  Transmission Date: 20250409
  Serious: Yes (Other)
  Sender: CHEPLAPHARM
  Company Number: US-CHEPLA-2025000099

PATIENT
  Sex: Female

DRUGS (3)
  1. CAPECITABINE [Suspect]
     Active Substance: CAPECITABINE
  2. TUKYSA [Suspect]
     Active Substance: TUCATINIB
  3. TUKYSA [Suspect]
     Active Substance: TUCATINIB

REACTIONS (3)
  - Metastases to central nervous system [Unknown]
  - Off label use [Unknown]
  - Human epidermal growth factor receptor positive [Unknown]
